FAERS Safety Report 23194616 (Version 2)
Quarter: 2023Q4

REPORT INFORMATION
  Report Type: Report from Study
  Country: CH (occurrence: None)
  Receive Date: 20231117
  Receipt Date: 20231123
  Transmission Date: 20240110
  Serious: Yes (Hospitalization)
  Sender: FDA-Public Use
  Company Number: CH-ROCHE-3458139

PATIENT
  Age: 58 Year
  Sex: Male
  Weight: 74.2 kg

DRUGS (7)
  1. OCRELIZUMAB [Suspect]
     Active Substance: OCRELIZUMAB
     Indication: Multiple sclerosis
     Dosage: ON 13/JULY/2023, HE RECEIVED THE MOST RECENT DOSE 603.2 MG PRIOR TO AE AND SAE , END DATE:13/JULY/20
     Route: 042
  2. OCRELIZUMAB [Suspect]
     Active Substance: OCRELIZUMAB
     Dosage: ON 12/JULY/2022, HE RECEIVED THE MOST RECENT DOSE PRIOR TO AE AND SAE?TOTAL VOLUME OF LAST OCRELIZUM
     Route: 042
  3. CHOLECALCIFEROL [Concomitant]
     Active Substance: CHOLECALCIFEROL
     Route: 048
     Dates: start: 20200520
  4. DEXPANTHENOL [Concomitant]
     Active Substance: DEXPANTHENOL
     Dates: start: 20231020, end: 20231025
  5. MODERNA COVID-19 VACCINE [Concomitant]
     Active Substance: ELASOMERAN
     Indication: COVID-19 immunisation
     Route: 030
     Dates: start: 20221020, end: 20221020
  6. TAMIFLU [Concomitant]
     Active Substance: OSELTAMIVIR PHOSPHATE
     Indication: Influenza
     Route: 048
     Dates: start: 20221217, end: 20221222
  7. IBUPROFEN [Concomitant]
     Active Substance: IBUPROFEN
     Indication: Tendonitis
     Route: 048
     Dates: start: 20230613, end: 20230620

REACTIONS (2)
  - Pneumonia pneumococcal [Recovered/Resolved]
  - Influenza [Recovered/Resolved]

NARRATIVE: CASE EVENT DATE: 20221216
